FAERS Safety Report 18617566 (Version 1)
Quarter: 2020Q4

REPORT INFORMATION
  Report Type: Spontaneous
  Country: CA (occurrence: CA)
  Receive Date: 20201215
  Receipt Date: 20201215
  Transmission Date: 20210114
  Serious: Yes (Life-Threatening, Other)
  Sender: FDA-Public Use
  Company Number: CA-ACCORD-211000

PATIENT
  Age: 58 Year
  Sex: Female
  Weight: 98.2 kg

DRUGS (15)
  1. NEURONTIN [Concomitant]
     Active Substance: GABAPENTIN
     Dosage: 2*100(200) MG TID
     Route: 048
  2. METHADONE [Concomitant]
     Active Substance: METHADONE HYDROCHLORIDE
     Dosage: 2*1(2MG)M BID
     Route: 048
  3. TAXOL [Concomitant]
     Active Substance: PACLITAXEL
     Route: 042
  4. PROCHLORPERAZINE. [Concomitant]
     Active Substance: PROCHLORPERAZINE
     Dosage: Q4H PRN
     Route: 048
  5. ATIVAN [Concomitant]
     Active Substance: LORAZEPAM
     Dosage: PRN DAILY
     Route: 048
  6. INSPIOLTO [Concomitant]
     Active Substance: OLODATEROL HYDROCHLORIDE\TIOTROPIUM BROMIDE MONOHYDRATE
     Dosage: 2 PUFFS, QAM
     Route: 055
  7. HYDROMORPH CONTIN [Concomitant]
     Active Substance: HYDROMORPHONE
     Dosage: Q 12 H
     Route: 048
  8. CARBOPLATIN. [Concomitant]
     Active Substance: CARBOPLATIN
     Route: 042
  9. ZOFRAN [Concomitant]
     Active Substance: ONDANSETRON HYDROCHLORIDE
     Dosage: FOR 4 DOSES, Q 12 H
     Route: 048
  10. ASPIRIN. [Concomitant]
     Active Substance: ASPIRIN
     Dosage: QAM, EC
     Route: 048
  11. CRESTOR [Concomitant]
     Active Substance: ROSUVASTATIN CALCIUM
     Dosage: QAM
     Route: 048
  12. HABITROL [Concomitant]
     Active Substance: NICOTINE
     Dosage: DAILY
     Route: 062
  13. DECADRON [Concomitant]
     Active Substance: DEXAMETHASONE
     Dosage: TAKE5*4MG 12 H AND 6 H PRIOR TO CHEMO, UD
     Route: 048
  14. PACLITAXEL ACCORD [Suspect]
     Active Substance: PACLITAXEL
     Indication: ADENOCARCINOMA
     Route: 042
     Dates: start: 20201204, end: 20201204
  15. LASIX [Concomitant]
     Active Substance: FUROSEMIDE
     Dosage: 3*20(60)MG, QAM
     Route: 048

REACTIONS (4)
  - Oxygen saturation decreased [Recovered/Resolved]
  - Cardiac arrest [Recovered/Resolved]
  - Dyspnoea [Recovered/Resolved]
  - Anxiety [Recovered/Resolved]

NARRATIVE: CASE EVENT DATE: 20201204
